FAERS Safety Report 7093416-9 (Version None)
Quarter: 2010Q4

REPORT INFORMATION
  Report Type: 
  Country: None (occurrence: None)
  Receive Date: 20101110
  Receipt Date: 20101028
  Transmission Date: 20110411
  Serious: Yes (Other)
  Sender: FDA-Public Use
  Company Number: PHHY2010DE73713

PATIENT
  Age: 75 Year
  Sex: Male

DRUGS (2)
  1. ZOLEDRONATE [Suspect]
     Indication: METASTASES TO BONE
     Dosage: 4 MG, QMO
     Route: 042
  2. CHEMOTHERAPEUTICS NOS [Concomitant]

REACTIONS (4)
  - BONE DEBRIDEMENT [None]
  - DENTAL OPERATION [None]
  - OSTEONECROSIS OF JAW [None]
  - WOUND CLOSURE [None]
